FAERS Safety Report 10381114 (Version 3)
Quarter: 2014Q3

REPORT INFORMATION
  Report Type: Spontaneous
  Country: US (occurrence: US)
  Receive Date: 20140813
  Receipt Date: 20140918
  Transmission Date: 20150326
  Serious: No
  Sender: FDA-Public Use
  Company Number: US-PFIZER INC-2014222415

PATIENT
  Age: 60 Year
  Sex: Male
  Weight: 144 kg

DRUGS (14)
  1. GLIPIZIDE. [Suspect]
     Active Substance: GLIPIZIDE
     Indication: DIABETES MELLITUS
     Dosage: UNK
     Route: 048
     Dates: end: 201306
  2. GLIPIZIDE. [Suspect]
     Active Substance: GLIPIZIDE
     Dosage: 10 MG, 1X/DAY
     Route: 048
     Dates: start: 201311, end: 2014
  3. FENOFIBRATE. [Concomitant]
     Active Substance: FENOFIBRATE
     Dosage: UNK
  4. HORSE CHESTNUT [Concomitant]
     Active Substance: HORSE CHESTNUT
     Indication: POOR PERIPHERAL CIRCULATION
     Dosage: UNK
  5. OMEGA-3 FATTY ACIDS [Concomitant]
     Active Substance: OMEGA-3 FATTY ACIDS
     Dosage: UNK
  6. VITAMIN B3 [Concomitant]
     Active Substance: NIACIN
     Dosage: UNK
  7. GLIPIZIDE. [Suspect]
     Active Substance: GLIPIZIDE
     Dosage: 20 MG, 1X/DAY
     Route: 048
     Dates: start: 2014, end: 2014
  8. ASPIRIN. [Concomitant]
     Active Substance: ASPIRIN
     Dosage: 81 MG, 2X/DAY
  9. JANUMET [Concomitant]
     Active Substance: METFORMIN HYDROCHLORIDE\SITAGLIPTIN PHOSPHATE
     Dosage: 1000 MG /50 MG, UNK
  10. PRAVASTATIN [Concomitant]
     Active Substance: PRAVASTATIN\PRAVASTATIN SODIUM
     Dosage: 20 MG, 1X/DAY NIGHT TIME
  11. LISINOPRIL. [Concomitant]
     Active Substance: LISINOPRIL
     Dosage: 20 MG, UNK
  12. GLIPIZIDE. [Suspect]
     Active Substance: GLIPIZIDE
     Dosage: 5 MG, 1X/DAY
     Route: 048
     Dates: start: 201306, end: 201311
  13. COLCHICINE. [Concomitant]
     Active Substance: COLCHICINE
     Dosage: UNK
  14. CINNAMON. [Concomitant]
     Active Substance: CINNAMON
     Dosage: UNK

REACTIONS (2)
  - Glycosylated haemoglobin increased [Unknown]
  - Drug intolerance [Unknown]

NARRATIVE: CASE EVENT DATE: 2014
